FAERS Safety Report 6709421-5 (Version None)
Quarter: 2010Q2

REPORT INFORMATION
  Report Type: 
  Country: None (occurrence: None)
  Receive Date: 20100504
  Receipt Date: 20100428
  Transmission Date: 20101027
  Serious: Yes (Hospitalization)
  Sender: FDA-Public Use
  Company Number: DK-WYE-G06051110

PATIENT
  Sex: Male

DRUGS (8)
  1. EFFEXOR [Suspect]
     Indication: DEPRESSION
     Dosage: 150 MG + 75 MG DAILY
     Route: 048
     Dates: start: 20080720, end: 20100225
  2. MAGNYL [Concomitant]
     Route: 048
  3. PANODIL - SLOW RELEASE [Concomitant]
     Indication: PAIN
     Route: 048
  4. ALENDRONATE SODIUM [Concomitant]
     Indication: OSTEOPOROSIS
     Route: 048
  5. FERROUS SULFATE TAB [Concomitant]
     Indication: SUPPLEMENTATION THERAPY
     Route: 048
  6. MAGNESIUM HYDROXIDE TAB [Concomitant]
     Indication: CONSTIPATION
     Route: 048
  7. KURACID [Concomitant]
     Indication: GASTRIC PH DECREASED
     Route: 048
  8. KININ [Concomitant]
     Indication: RESTLESS LEGS SYNDROME
     Dosage: 200 MG DAILY
     Route: 048

REACTIONS (4)
  - DIZZINESS [None]
  - FALL [None]
  - ORTHOSTATIC HYPOTENSION [None]
  - SUBDURAL HAEMATOMA [None]
